FAERS Safety Report 7205544-5 (Version None)
Quarter: 2010Q4

REPORT INFORMATION
  Report Type: 
  Country: None (occurrence: None)
  Receive Date: 20101231
  Receipt Date: 20101229
  Transmission Date: 20110411
  Serious: Yes (Hospitalization)
  Sender: FDA-Public Use
  Company Number: US-BRISTOL-MYERS SQUIBB COMPANY-15465461

PATIENT
  Age: 53 Year
  Sex: Female
  Weight: 60 kg

DRUGS (8)
  1. IXABEPILONE [Suspect]
     Indication: BREAST CANCER METASTATIC
     Dosage: DAY 1 ,8,LAST DOSE ON 28DEC2010
     Route: 042
     Dates: start: 20100215
  2. CARBOPLATIN [Suspect]
     Indication: BREAST CANCER METASTATIC
     Dosage: DAY 1,8.LAST DOSE ON 28DEC2010.
     Route: 042
     Dates: start: 20100215
  3. DIPHENHYDRAMINE [Concomitant]
     Indication: PREMEDICATION
     Route: 042
     Dates: start: 20100309
  4. ATIVAN [Concomitant]
     Indication: NAUSEA
     Route: 048
     Dates: start: 20100209
  5. ATIVAN [Concomitant]
     Indication: ANXIETY
     Route: 048
     Dates: start: 20100209
  6. PERCOCET [Concomitant]
     Indication: PAIN
     Dosage: 1 DF=5-325 MG
     Route: 048
     Dates: start: 20100209
  7. COMPAZINE [Concomitant]
     Indication: NAUSEA
     Route: 048
     Dates: start: 20100209
  8. FAMOTIDINE [Concomitant]
     Indication: PREMEDICATION
     Route: 042
     Dates: start: 20100309

REACTIONS (3)
  - CHILLS [None]
  - OXYGEN SATURATION DECREASED [None]
  - PYREXIA [None]
